FAERS Safety Report 7553907-0 (Version None)
Quarter: 2011Q2

REPORT INFORMATION
  Report Type: 
  Country: None (occurrence: None)
  Receive Date: 20110617
  Receipt Date: 20110531
  Transmission Date: 20111010
  Serious: No
  Sender: FDA-Public Use
  Company Number: US-B.I. PHARMACEUTICALS,INC./RIDGEFIELD-2011-BP-12822BP

PATIENT
  Sex: Male

DRUGS (11)
  1. CO Q10 [Concomitant]
     Indication: ROUTINE HEALTH MAINTENANCE
     Dosage: 200 MG
     Route: 048
     Dates: start: 20090101
  2. LIPITOR [Concomitant]
     Indication: BLOOD CHOLESTEROL INCREASED
     Dosage: 10 MG
     Route: 048
     Dates: start: 20010101
  3. METOPROLOL TARTRATE [Concomitant]
     Indication: ATRIAL FIBRILLATION
     Dosage: 50 MG
     Route: 048
     Dates: start: 20101001
  4. SAW PALMETTO [Concomitant]
     Indication: ROUTINE HEALTH MAINTENANCE
     Dosage: 160 MG
     Route: 048
     Dates: start: 20030101
  5. RESVERATROL [Concomitant]
  6. PRADAXA [Suspect]
     Indication: ATRIAL FIBRILLATION
     Dosage: 300 MG
     Route: 048
     Dates: start: 20110411, end: 20110417
  7. PRADAXA [Suspect]
     Indication: CEREBROVASCULAR ACCIDENT PROPHYLAXIS
     Dosage: 300 MG
     Route: 048
     Dates: start: 20110511
  8. DIOVAN [Concomitant]
     Indication: HYPERTENSION
     Dosage: 320 MG
     Route: 048
     Dates: start: 20110301
  9. ASPIRIN [Concomitant]
     Dosage: 162 MG
     Route: 048
     Dates: start: 20110418, end: 20110508
  10. MULTIVITAMIN-CENTRUM SILVER [Concomitant]
  11. ASPIRIN [Concomitant]
     Indication: ANTICOAGULANT THERAPY
     Dosage: 162 MG
     Route: 048
     Dates: start: 20100101, end: 20110410

REACTIONS (1)
  - ARTHRALGIA [None]
